FAERS Safety Report 8880624 (Version 3)
Quarter: 2013Q1

REPORT INFORMATION
  Report Type: Report from Study
  Country: US (occurrence: US)
  Receive Date: 20121101
  Receipt Date: 20130325
  Transmission Date: 20140127
  Serious: Yes (Other)
  Sender: FDA-Public Use
  Company Number: US-JNJFOC-20121015023

PATIENT
  Sex: Female
  Weight: 92.99 kg

DRUGS (7)
  1. STELARA [Suspect]
     Indication: PSORIASIS
     Route: 058
  2. STELARA [Suspect]
     Indication: PSORIASIS
     Route: 058
     Dates: start: 2011, end: 20120609
  3. FLUOXETINE [Concomitant]
     Indication: DEPRESSION
     Dates: start: 1989
  4. LIPITOR [Concomitant]
     Indication: BLOOD CHOLESTEROL INCREASED
     Dates: start: 1999
  5. ESTROVEN [Concomitant]
     Indication: MENOPAUSE
  6. CALTRATE [Concomitant]
     Indication: MINERAL SUPPLEMENTATION
  7. FISH OIL [Concomitant]
     Indication: MEDICAL DIET

REACTIONS (2)
  - Ovarian cancer [Recovered/Resolved]
  - Inappropriate schedule of drug administration [Unknown]
